FAERS Safety Report 15875861 (Version 2)
Quarter: 2019Q1

REPORT INFORMATION
  Report Type: Spontaneous
  Country: ES (occurrence: ES)
  Receive Date: 20190126
  Receipt Date: 20190318
  Transmission Date: 20190417
  Serious: Yes (Death, Hospitalization)
  Sender: FDA-Public Use
  Company Number: PHHY2019ES015573

PATIENT
  Age: 73 Year
  Sex: Female
  Weight: 72 kg

DRUGS (7)
  1. DIAMICRON [Suspect]
     Active Substance: GLICLAZIDE
     Indication: HYPERGLYCAEMIA
     Dosage: 30 MG, QD (1 COMPRIMIDO POR LA MA?ANA)
     Route: 048
     Dates: start: 20181215
  2. NOLOTIL (DEXTROPROPOXYPHENE/METAMIZOLE MAGNESIUM) [Suspect]
     Active Substance: METAMIZOLE\PROPOXYPHENE
     Indication: NECK PAIN
     Dosage: 575 MG, QD (1 COMPRIMIDO POR LA MA?ANA)
     Route: 048
     Dates: start: 20181215
  3. ATORVASTATINA PENSA [Suspect]
     Active Substance: ATORVASTATIN CALCIUM
     Indication: BLOOD CHOLESTEROL
     Dosage: 40 MG, QD (1 COMPRIMIDO POR LA NOCHE)
     Route: 048
     Dates: start: 20181214
  4. HIDROCLOROTIAZID KERN PHARMA [Suspect]
     Active Substance: HYDROCHLOROTHIAZIDE
     Indication: FLUID RETENTION
     Dosage: 25 MG, QD (1 COMPRIMIDO POR LA MA?ANA)
     Route: 048
     Dates: start: 20181215
  5. ENALAPRIL TARBIS [Suspect]
     Active Substance: ENALAPRIL MALEATE
     Indication: TENSION
     Dosage: 40 MG, QD (1 COMPRIMIDO POR LA MANANA Y 1 POR LA TARDE)
     Route: 048
     Dates: start: 20181215
  6. LISALGIL [Suspect]
     Active Substance: METAMIZOLE SODIUM
     Indication: PRODUCT USED FOR UNKNOWN INDICATION
     Dosage: 575 MG, QD
     Route: 048
     Dates: start: 20181215
  7. METFORMIN [Suspect]
     Active Substance: METFORMIN HYDROCHLORIDE
     Indication: HYPERGLYCAEMIA
     Dosage: 425 MG, QD (MEDIO COMPRIMIDO UNA VEZ AL DIA DESPUES DE COMER)
     Route: 048
     Dates: start: 20181214

REACTIONS (4)
  - Neck pain [Recovered/Resolved]
  - Urticaria [Recovered/Resolved]
  - Swelling [Recovered/Resolved]
  - Skin reaction [Recovered/Resolved]

NARRATIVE: CASE EVENT DATE: 20181215
